FAERS Safety Report 7838912-9 (Version None)
Quarter: 2011Q4

REPORT INFORMATION
  Report Type: 
  Country: None (occurrence: None)
  Receive Date: 20111024
  Receipt Date: 20111014
  Transmission Date: 20120403
  Serious: Yes (Disabling)
  Sender: FDA-Public Use
  Company Number: US-US-EMD SERONO, INC.-7089944

PATIENT
  Sex: Female
  Weight: 68 kg

DRUGS (3)
  1. BIRTH CONTROL PILLS [Concomitant]
     Indication: CONTRACEPTION
  2. REBIF [Suspect]
     Indication: MULTIPLE SCLEROSIS
     Route: 058
     Dates: start: 20091013
  3. CELEXA [Concomitant]
     Indication: DEPRESSION

REACTIONS (1)
  - BLINDNESS [None]
